FAERS Safety Report 23096485 (Version 1)
Quarter: 2023Q4

REPORT INFORMATION
  Report Type: Spontaneous
  Country: US (occurrence: None)
  Receive Date: 20231022
  Receipt Date: 20231022
  Transmission Date: 20240110
  Serious: Yes (Other)
  Sender: FDA-Public Use
  Company Number: None

PATIENT
  Age: 67 Year
  Sex: Female

DRUGS (2)
  1. OZEMPIC [Suspect]
     Active Substance: SEMAGLUTIDE
     Dosage: OTHER QUANTITY : 1 MG;?FREQUENCY : WEEKLY;?OTHER ROUTE : INJECTED INTO FATTY PART OF BODY;?
     Route: 050
     Dates: start: 20221102, end: 20230118
  2. OZEMPIC [Suspect]
     Active Substance: SEMAGLUTIDE
     Dosage: OTHER QUANTITY : .25 MG;?OTHER FREQUENCY : 1-2/WEEK;?OTHER ROUTE : INTO FATTY AREA;?
     Route: 050
     Dates: start: 20221102, end: 20230111

REACTIONS (2)
  - Aspartate aminotransferase increased [None]
  - Alanine aminotransferase increased [None]

NARRATIVE: CASE EVENT DATE: 20230113
